FAERS Safety Report 9147480 (Version 2)
Quarter: 2013Q2

REPORT INFORMATION
  Report Type: Spontaneous
  Country: FR (occurrence: None)
  Receive Date: 20130213
  Receipt Date: 20130418
  Transmission Date: 20140414
  Serious: Yes (Death)
  Sender: FDA-Public Use
  Company Number: 2013CP000009

PATIENT
  Age: 89 Year
  Sex: Male

DRUGS (15)
  1. PERFALGAN [Suspect]
     Dosage: 1 DOSAGE FORM; IV
     Route: 042
     Dates: start: 20121024, end: 20121024
  2. INVANZ [Suspect]
     Route: 042
     Dates: start: 20121024
  3. DAFALGAN [Concomitant]
  4. XATRAL [Concomitant]
  5. URBANYL [Concomitant]
  6. STABLON [Concomitant]
  7. LAMOTRIGINE [Concomitant]
  8. SERESTA [Concomitant]
  9. IMOVANE [Concomitant]
  10. LOXEN [Concomitant]
  11. ATENOLOL [Concomitant]
  12. TAHOR [Concomitant]
  13. ALLOPURINOL [Concomitant]
  14. KARDEGIC [Concomitant]
  15. MACROGOL 3350 [Concomitant]

REACTIONS (1)
  - Cardio-respiratory arrest [None]
